FAERS Safety Report 25230619 (Version 1)
Quarter: 2025Q2

REPORT INFORMATION
  Report Type: Other
  Country: IT (occurrence: IT)
  Receive Date: 20250423
  Receipt Date: 20250423
  Transmission Date: 20250716
  Serious: Yes (Other)
  Sender: APPCO PHARMA LLC
  Company Number: IT-Appco Pharma LLC-2175443

PATIENT
  Age: 14 Year
  Sex: Female

DRUGS (3)
  1. HYDROXYCHLOROQUINE SULFATE [Suspect]
     Active Substance: HYDROXYCHLOROQUINE SULFATE
     Indication: Systemic lupus erythematosus
  2. AZATHIOPRINE [Suspect]
     Active Substance: AZATHIOPRINE
  3. PREDNISONE [Suspect]
     Active Substance: PREDNISONE

REACTIONS (2)
  - Whipple^s disease [Recovered/Resolved with Sequelae]
  - Myelitis transverse [Recovered/Resolved with Sequelae]
